FAERS Safety Report 8070684-8 (Version None)
Quarter: 2012Q1

REPORT INFORMATION
  Report Type: 
  Country: None (occurrence: None)
  Receive Date: 20120125
  Receipt Date: 20120120
  Transmission Date: 20120608
  Serious: Yes (Other)
  Sender: FDA-Public Use
  Company Number: PHHY2012FI003882

PATIENT
  Age: 75 Year
  Sex: Male

DRUGS (3)
  1. ZOMETA [Suspect]
     Indication: PROSTATE CANCER
     Dosage: 4 MG, ONE INFUSION EVERY FOURTH WEEK
     Dates: start: 20110901, end: 20111201
  2. DOCETAXEL [Concomitant]
  3. ENANTON [Concomitant]

REACTIONS (10)
  - ALANINE AMINOTRANSFERASE INCREASED [None]
  - SKIN REACTION [None]
  - TOXICITY TO VARIOUS AGENTS [None]
  - HEPATIC ENZYME INCREASED [None]
  - JAUNDICE [None]
  - PRURITUS [None]
  - LIVER INJURY [None]
  - BLOOD BILIRUBIN INCREASED [None]
  - BLOOD ALKALINE PHOSPHATASE INCREASED [None]
  - URINE COLOUR ABNORMAL [None]
